FAERS Safety Report 8514164-1 (Version None)
Quarter: 2012Q3

REPORT INFORMATION
  Report Type: 
  Country: None (occurrence: None)
  Receive Date: 20120717
  Receipt Date: 20120705
  Transmission Date: 20120928
  Serious: Yes (Hospitalization)
  Sender: FDA-Public Use
  Company Number: JP-BRISTOL-MYERS SQUIBB COMPANY-14589196

PATIENT
  Age: 34 Year
  Sex: Male

DRUGS (6)
  1. RECOMBINATE [Concomitant]
     Dosage: 1 THOUSAND MILLION UNIT 1 MONTH 4-6X/MONTH
     Dates: end: 20070406
  2. ZERIT [Suspect]
     Indication: HIV INFECTION
     Dosage: REG 1
     Route: 048
     Dates: start: 20000519, end: 20060829
  3. EFAVIRENZ [Suspect]
     Indication: HIV INFECTION
     Route: 048
     Dates: start: 20000901, end: 20100711
  4. TRUVADA [Suspect]
     Indication: HIV INFECTION
     Dosage: 1 DF=TAB
     Route: 048
     Dates: start: 20060830
  5. EPIVIR [Suspect]
     Indication: HIV INFECTION
     Dosage: REG1
     Route: 048
     Dates: start: 20000904, end: 20060829
  6. ENALAPRIL MALEATE [Concomitant]
     Dosage: TABS
     Dates: end: 20050331

REACTIONS (2)
  - VARICES OESOPHAGEAL [None]
  - LIPOATROPHY [None]
